FAERS Safety Report 20839829 (Version 4)
Quarter: 2022Q2

REPORT INFORMATION
  Report Type: Spontaneous
  Country: RO (occurrence: RO)
  Receive Date: 20220517
  Receipt Date: 20220607
  Transmission Date: 20220720
  Serious: Yes (Hospitalization, Other)
  Sender: FDA-Public Use
  Company Number: RO-PFIZER INC-202200592560

PATIENT
  Age: 61 Year
  Sex: Male

DRUGS (30)
  1. VANCOMYCIN [Suspect]
     Active Substance: VANCOMYCIN
     Indication: Staphylococcal infection
     Dosage: UNK
     Dates: start: 202105, end: 20210602
  2. VANCOMYCIN [Suspect]
     Active Substance: VANCOMYCIN
     Dosage: UNK
     Dates: start: 20210602, end: 20210616
  3. VANCOMYCIN [Suspect]
     Active Substance: VANCOMYCIN
     Dosage: UNK
     Dates: start: 20210616, end: 20210624
  4. CEFTAZIDIME [Suspect]
     Active Substance: CEFTAZIDIME
     Indication: COVID-19 pneumonia
     Dosage: UNK
  5. AVIBACTAM SODIUM\CEFTAZIDIME [Suspect]
     Active Substance: AVIBACTAM SODIUM\CEFTAZIDIME
     Indication: Bacterial infection
     Dosage: UNK
     Dates: start: 202105, end: 2021
  6. LINEZOLID [Suspect]
     Active Substance: LINEZOLID
     Indication: Evidence based treatment
     Dosage: UNK
     Dates: start: 20210419, end: 20210504
  7. LINEZOLID [Suspect]
     Active Substance: LINEZOLID
     Dosage: UNK
  8. REMDESIVIR [Suspect]
     Active Substance: REMDESIVIR
     Indication: COVID-19
     Dosage: UNK
  9. VANCOMYCIN [Suspect]
     Active Substance: VANCOMYCIN
     Indication: Staphylococcal infection
     Dosage: UNK
  10. AMPICILLIN [Suspect]
     Active Substance: AMPICILLIN
     Indication: Bacterial infection
     Dosage: UNK
     Dates: start: 202105, end: 20210602
  11. AMPICILLIN [Suspect]
     Active Substance: AMPICILLIN
     Indication: COVID-19 pneumonia
     Dosage: UNK
     Dates: start: 20210602, end: 20210616
  12. AMPICILLIN [Suspect]
     Active Substance: AMPICILLIN
     Indication: Staphylococcal infection
     Dosage: UNK
     Dates: start: 20210616, end: 20210624
  13. AMPICILLIN [Suspect]
     Active Substance: AMPICILLIN
     Dosage: UNK
  14. AVIBACTAM [Suspect]
     Active Substance: AVIBACTAM
     Indication: Product used for unknown indication
     Dosage: UNK
  15. COLISTIN [Concomitant]
     Active Substance: COLISTIN
     Indication: Evidence based treatment
     Dosage: UNK
     Dates: start: 20210506, end: 20210602
  16. COLISTIN [Concomitant]
     Active Substance: COLISTIN
     Indication: COVID-19 pneumonia
     Dosage: UNK
     Dates: start: 20210602, end: 20210616
  17. COLISTIN [Concomitant]
     Active Substance: COLISTIN
     Dosage: UNK
     Dates: start: 20210616, end: 20210624
  18. COLISTIN [Concomitant]
     Active Substance: COLISTIN
     Dosage: UNK
  19. MEROPENEM [Concomitant]
     Active Substance: MEROPENEM
     Indication: Evidence based treatment
     Dosage: UNK
     Dates: start: 20210419, end: 202105
  20. MEROPENEM [Concomitant]
     Active Substance: MEROPENEM
     Dosage: UNK
  21. VORICONAZOLE [Concomitant]
     Active Substance: VORICONAZOLE
     Indication: Bronchopulmonary aspergillosis
     Dosage: UNK
     Route: 048
     Dates: start: 20210419, end: 20210602
  22. VORICONAZOLE [Concomitant]
     Active Substance: VORICONAZOLE
     Indication: Aspergillus infection
     Dosage: UNK
     Dates: start: 20210602, end: 20210616
  23. VORICONAZOLE [Concomitant]
     Active Substance: VORICONAZOLE
     Dosage: UNK
     Dates: start: 20210616, end: 20210624
  24. VORICONAZOLE [Concomitant]
     Active Substance: VORICONAZOLE
     Dosage: UNK
     Route: 048
  25. ANIDULAFUNGIN [Concomitant]
     Active Substance: ANIDULAFUNGIN
     Indication: Candida infection
     Dosage: UNK
     Dates: start: 202104, end: 2021
  26. ANIDULAFUNGIN [Concomitant]
     Active Substance: ANIDULAFUNGIN
     Dosage: UNK
  27. DEXAMETHASONE [Concomitant]
     Active Substance: DEXAMETHASONE
     Indication: Inflammation
     Dosage: 8 MILLIGRAM, QD, (8 MG, PER DAY, TAPERED UNTIL CESSATION 14 DAYS LATER)
     Dates: start: 20210426
  28. DEXAMETHASONE [Concomitant]
     Active Substance: DEXAMETHASONE
     Indication: COVID-19
     Dosage: 24 MILLIGRAM, QD,  (24 MG, PER DAY, TAPERED UNTIL CESSATION 14 DAYS LATER)
     Route: 042
  29. OXYGEN [Concomitant]
     Active Substance: OXYGEN
     Dosage: UNK, PROVIDED, WITH DECREASING VOLUMES UNTIL REMOVAL SIX DAYS LATER
  30. OXYGEN [Concomitant]
     Active Substance: OXYGEN
     Dosage: UNK, LOW VOLUMES

REACTIONS (5)
  - Pulmonary mucormycosis [Recovered/Resolved]
  - Anaemia [Unknown]
  - Drug ineffective [Not Recovered/Not Resolved]
  - Disease progression [Unknown]
  - Drug resistance [Unknown]

NARRATIVE: CASE EVENT DATE: 20210401
